FAERS Safety Report 18471860 (Version 3)
Quarter: 2021Q2

REPORT INFORMATION
  Report Type: Other
  Country: CA (occurrence: CA)
  Receive Date: 20201105
  Receipt Date: 20210607
  Transmission Date: 20210717
  Serious: Yes (Other)
  Sender: FDA-Public Use
  Company Number: CA-CELLTRION INC.-2020CA030303

PATIENT

DRUGS (12)
  1. RITUXIMAB (UNKNOWN) [Suspect]
     Active Substance: RITUXIMAB
     Indication: NEUROMYELITIS OPTICA SPECTRUM DISORDER
     Dosage: 1000 MG, 1 EVERY 6 MONTHS
     Route: 042
  2. ESCITALOPRAM [Concomitant]
     Active Substance: ESCITALOPRAM OXALATE
  3. BEE POLLEN [Concomitant]
     Active Substance: BEE POLLEN
  4. NORTRIPTYLINE [Concomitant]
     Active Substance: NORTRIPTYLINE
  5. BENADRYL [Concomitant]
     Active Substance: DIPHENHYDRAMINE HYDROCHLORIDE
     Indication: PREMEDICATION
     Dosage: 50 MG
     Route: 048
  6. IRON [Concomitant]
     Active Substance: IRON
  7. PREDNISONE. [Concomitant]
     Active Substance: PREDNISONE
     Indication: PREMEDICATION
     Dosage: 50 MG
     Route: 048
  8. RITUXIMAB (UNKNOWN) [Suspect]
     Active Substance: RITUXIMAB
     Dosage: 1000 MG, 1 EVERY 15 DAYS
     Route: 042
  9. TYLENOL [Concomitant]
     Active Substance: ACETAMINOPHEN
     Indication: PREMEDICATION
     Dosage: 1000 MG
     Route: 065
  10. MODAFINIL. [Concomitant]
     Active Substance: MODAFINIL
     Dosage: 100 MG, 2 EVERY 1 DAYS
     Route: 065
  11. RITUXIMAB (UNKNOWN) [Suspect]
     Active Substance: RITUXIMAB
     Indication: RHEUMATOID ARTHRITIS
     Dosage: 1000 MG, 1 EVERY 6 MONTHS
     Route: 042
  12. OMEGA 3 [DOCOSAHEXAENOIC ACID;EICOSAPENTAENOIC ACID] [Concomitant]
     Active Substance: DOCONEXENT\ICOSAPENT

REACTIONS (10)
  - Off label use [Not Recovered/Not Resolved]
  - Off label use [Unknown]
  - Paraesthesia [Not Recovered/Not Resolved]
  - Intentional product use issue [Not Recovered/Not Resolved]
  - Bronchitis viral [Not Recovered/Not Resolved]
  - Cognitive disorder [Not Recovered/Not Resolved]
  - Cough [Not Recovered/Not Resolved]
  - Fatigue [Not Recovered/Not Resolved]
  - Intervertebral disc protrusion [Not Recovered/Not Resolved]
  - Therapeutic product effect decreased [Not Recovered/Not Resolved]
